FAERS Safety Report 6196136-8 (Version None)
Quarter: 2009Q2

REPORT INFORMATION
  Report Type: 
  Country: None (occurrence: None)
  Receive Date: 20090520
  Receipt Date: 20090512
  Transmission Date: 20091009
  Serious: Yes (Hospitalization)
  Sender: FDA-Public Use
  Company Number: US-BIOGENIDEC-2007BI020963

PATIENT
  Age: 56 Year
  Sex: Female
  Weight: 154 kg

DRUGS (3)
  1. AVONEX [Suspect]
     Indication: MULTIPLE SCLEROSIS
     Route: 030
     Dates: start: 20000801, end: 20030101
  2. AVONEX [Suspect]
     Route: 030
     Dates: start: 20030101
  3. SYNTHROID [Concomitant]
     Indication: THYROID DISORDER

REACTIONS (5)
  - ACTIVATED PARTIAL THROMBOPLASTIN TIME PROLONGED [None]
  - ARTHRITIS [None]
  - DIABETES MELLITUS [None]
  - GAIT DISTURBANCE [None]
  - PULMONARY THROMBOSIS [None]
